FAERS Safety Report 17361436 (Version 3)
Quarter: 2020Q1

REPORT INFORMATION
  Report Type: Spontaneous
  Country: US (occurrence: US)
  Receive Date: 20200203
  Receipt Date: 20200305
  Transmission Date: 20200409
  Serious: No
  Sender: FDA-Public Use
  Company Number: US-PFIZER INC-2020041133

PATIENT
  Age: 39 Year
  Sex: Female

DRUGS (2)
  1. SOMAVERT [Suspect]
     Active Substance: PEGVISOMANT
     Dosage: 20 MG, EVERY OTHER DAY
     Route: 058
     Dates: start: 20200121
  2. SOMAVERT [Suspect]
     Active Substance: PEGVISOMANT
     Indication: ACROMEGALY
     Dosage: UNK, (EVERY OTHER DAY) ON EVEN DAYS
     Dates: start: 2003

REACTIONS (4)
  - Drug ineffective [Unknown]
  - Off label use [Unknown]
  - Arthritis [Unknown]
  - Product use issue [Unknown]

NARRATIVE: CASE EVENT DATE: 2003
